FAERS Safety Report 14553495 (Version 5)
Quarter: 2018Q2

REPORT INFORMATION
  Report Type: Spontaneous
  Country: FR (occurrence: FR)
  Receive Date: 20180220
  Receipt Date: 20180514
  Transmission Date: 20180711
  Serious: Yes (Death)
  Sender: FDA-Public Use
  Company Number: FR-PFIZER INC-2018066202

PATIENT
  Age: 58 Year
  Sex: Female
  Weight: 78 kg

DRUGS (32)
  1. IMOVANE [Suspect]
     Active Substance: ZOPICLONE
     Dosage: UNK
     Route: 048
     Dates: start: 201801
  2. SERETIDE [Concomitant]
     Active Substance: FLUTICASONE PROPIONATE\SALMETEROL XINAFOATE
     Indication: ASTHMA
     Dosage: 2000 UG, 1X/DAY:1000 MICROGRAMS 2 PUFFS
     Route: 055
     Dates: start: 19980101
  3. PANTOPRAZOLE [Concomitant]
     Active Substance: PANTOPRAZOLE
     Dosage: 1 DF, 1X/DAY, IN THE EVENING
  4. AZOPT [Concomitant]
     Active Substance: BRINZOLAMIDE
     Dosage: 2 GTT, SINGLE IN THE EVENING
     Route: 001
  5. THEOPHYLLINE [Concomitant]
     Active Substance: THEOPHYLLINE ANHYDROUS
     Dosage: 1 DF, 2X/DAY, IN THE MORNING AND EVENING
  6. ZITHROMAX [Concomitant]
     Active Substance: AZITHROMYCIN DIHYDRATE
     Indication: ASTHMA
     Dosage: 2250 MG, WEEKLY
     Route: 048
     Dates: start: 20170401
  7. ATHYMIL [Suspect]
     Active Substance: MIANSERIN HYDROCHLORIDE
     Indication: DEPRESSION
     Dosage: 1 DF, 1X/DAY
     Route: 048
     Dates: start: 20080101
  8. ATHYMIL [Suspect]
     Active Substance: MIANSERIN HYDROCHLORIDE
     Dosage: 1 DF, 1X/DAY
     Dates: start: 201801
  9. SERETIDE [Concomitant]
     Active Substance: FLUTICASONE PROPIONATE\SALMETEROL XINAFOATE
     Dosage: 1000 UG, 1X/DAY (1000 MICROGRAMS 2)
     Route: 048
     Dates: start: 19980101
  10. DIFFU K [Concomitant]
     Active Substance: POTASSIUM CHLORIDE
     Dosage: 2400 MG, 1X/DAY
  11. LEXOMIL [Suspect]
     Active Substance: BROMAZEPAM
     Dosage: 0.5 DF, 1X/DAY
  12. DUPILUMAB [Suspect]
     Active Substance: DUPILUMAB
     Indication: ASTHMA
     Dosage: 600 MG SINGLE
     Route: 058
     Dates: start: 20171222, end: 20171222
  13. CORTANCYL [Concomitant]
     Active Substance: PREDNISONE
     Dosage: 1 DF, SINGLE IN THE MORNING
  14. DOLIPRANE [Concomitant]
     Active Substance: ACETAMINOPHEN
     Dosage: UNK
  15. XANAX [Suspect]
     Active Substance: ALPRAZOLAM
     Indication: DEPRESSION
     Dosage: 0.5 MG, 1X/DAY
     Route: 048
     Dates: start: 20080101
  16. TOBI [Concomitant]
     Active Substance: TOBRAMYCIN
     Dosage: 300 MG, 1X/DAY
     Route: 048
     Dates: start: 201710
  17. ZITHROMAX [Concomitant]
     Active Substance: AZITHROMYCIN DIHYDRATE
     Dosage: 1 DF, WEEKLY
     Route: 048
     Dates: start: 201704
  18. ATROVENT [Concomitant]
     Active Substance: IPRATROPIUM BROMIDE
     Dosage: 1 DF, 1X/DAY
  19. CETIRIZINE [Concomitant]
     Active Substance: CETIRIZINE HYDROCHLORIDE
     Dosage: 1 DF, SINGLE IN THE EVENING
  20. BRICANYL [Concomitant]
     Active Substance: TERBUTALINE SULFATE
     Dosage: 4 DF, 1X/DAY
  21. BRICANYL [Concomitant]
     Active Substance: TERBUTALINE SULFATE
     Dosage: 1 DF, 1X/DAY
  22. SPIRIVA [Concomitant]
     Active Substance: TIOTROPIUM BROMIDE MONOHYDRATE
     Indication: ASTHMA
     Dosage: 2.5 MG, 1X/DAY
     Route: 055
     Dates: start: 19980101
  23. SPIRIVA [Concomitant]
     Active Substance: TIOTROPIUM BROMIDE MONOHYDRATE
     Dosage: 2.5 UG, UNK
     Dates: start: 19980101
  24. ZITHROMAX [Concomitant]
     Active Substance: AZITHROMYCIN DIHYDRATE
     Dosage: 200 MG, WEEKLY
     Route: 048
     Dates: start: 201704
  25. ATROVENT [Concomitant]
     Active Substance: IPRATROPIUM BROMIDE
     Dosage: 2 DF, 1X/DAY
  26. DILTIAZEM. [Concomitant]
     Active Substance: DILTIAZEM
     Dosage: 1 DF, 2X/DAY,ONE IN THE MORNING AND ONE IN THE EVENING
  27. FLUDEX /00340101/ [Concomitant]
     Active Substance: INDAPAMIDE
     Dosage: 1 DF, SINGLE, IN THE MORNING
  28. XANAX [Suspect]
     Active Substance: ALPRAZOLAM
     Dosage: 0.25 MG, 1X/DAY
     Route: 048
     Dates: start: 201801
  29. DUPILUMAB [Suspect]
     Active Substance: DUPILUMAB
     Dosage: 300 MG, EVERY 2 WEEKS
     Route: 058
     Dates: start: 20180105, end: 20180105
  30. IMOVANE [Suspect]
     Active Substance: ZOPICLONE
     Indication: DEPRESSION
     Dosage: UNK
     Route: 048
     Dates: start: 20080101
  31. TOBI [Concomitant]
     Active Substance: TOBRAMYCIN
     Indication: BRONCHITIS
     Dosage: 600 MG, 1X/DAY
     Route: 048
     Dates: start: 20171001
  32. LUMIGAN [Concomitant]
     Active Substance: BIMATOPROST
     Dosage: 2 GTT, SINGLE IN THE MORNING
     Route: 001

REACTIONS (5)
  - Hypercapnia [Fatal]
  - Speech disorder [Unknown]
  - Somnolence [Fatal]
  - Product use in unapproved indication [Unknown]
  - Fatigue [Fatal]

NARRATIVE: CASE EVENT DATE: 20171222
